FAERS Safety Report 9534530 (Version 2)
Quarter: 2014Q1

REPORT INFORMATION
  Report Type: Report from Study
  Country: HU (occurrence: HU)
  Receive Date: 20130918
  Receipt Date: 20140314
  Transmission Date: 20141002
  Serious: Yes (Other)
  Sender: FDA-Public Use
  Company Number: HU-JNJFOC-20130808852

PATIENT
  Age: 58 Year
  Sex: Female

DRUGS (1)
  1. STELARA [Suspect]
     Indication: PSORIASIS
     Route: 058
     Dates: start: 20110421

REACTIONS (7)
  - Thyroid mass [Unknown]
  - Contusion [Unknown]
  - Capillary fragility decreased [Unknown]
  - Head injury [Unknown]
  - Local swelling [Unknown]
  - Oropharyngeal pain [Unknown]
  - Cough [Unknown]
